FAERS Safety Report 9537207 (Version 2)
Quarter: 2013Q3

REPORT INFORMATION
  Report Type: Spontaneous
  Country: US (occurrence: US)
  Receive Date: 20130919
  Receipt Date: 20130919
  Transmission Date: 20140515
  Serious: No
  Sender: FDA-Public Use
  Company Number: US-PURDUE-USA-2012-0094822

PATIENT
  Sex: Female
  Weight: 64.4 kg

DRUGS (1)
  1. INTERMEZZO [Suspect]
     Indication: INSOMNIA
     Dosage: 1.75 MG, SINGLE
     Route: 060
     Dates: start: 2012

REACTIONS (6)
  - Vision blurred [Recovered/Resolved]
  - Drug tolerance decreased [Recovered/Resolved]
  - Feeling drunk [Recovered/Resolved]
  - Drug effect delayed [Recovered/Resolved]
  - Nausea [Recovered/Resolved]
  - Dizziness [Recovered/Resolved]
